FAERS Safety Report 17930288 (Version 1)
Quarter: 2020Q2

REPORT INFORMATION
  Report Type: Other
  Country: JP (occurrence: JP)
  Receive Date: 20200623
  Receipt Date: 20200623
  Transmission Date: 20200714
  Serious: Yes (Other)
  Sender: FDA-Public Use
  Company Number: JP-ALSI-202000218

PATIENT
  Age: 59 Year
  Sex: Male
  Weight: 74 kg

DRUGS (5)
  1. REMIFENTANIL [Concomitant]
     Active Substance: REMIFENTANIL
  2. DESFLURANE. [Concomitant]
     Active Substance: DESFLURANE
  3. ROCURONIUM [Concomitant]
     Active Substance: ROCURONIUM BROMIDE
  4. CARBON DIOXIDE. [Suspect]
     Active Substance: CARBON DIOXIDE
     Indication: LAPAROSCOPIC SURGERY
  5. PROPOFOL. [Concomitant]
     Active Substance: PROPOFOL

REACTIONS (1)
  - Air embolism [Recovered/Resolved]
